FAERS Safety Report 6140802-7 (Version None)
Quarter: 2009Q1

REPORT INFORMATION
  Report Type: 
  Country: None (occurrence: None)
  Receive Date: 20090331
  Receipt Date: 20090319
  Transmission Date: 20090719
  Serious: Yes (Other)
  Sender: FDA-Public Use
  Company Number: 2009AP001170

PATIENT
  Age: 16 Year
  Sex: Male

DRUGS (10)
  1. RISPERIDONE [Suspect]
     Indication: AGITATION
     Dosage: 1 MG; BID, PO
     Route: 048
     Dates: start: 20071107, end: 20071113
  2. ALGINIC ACID (ALGINIC ACID) [Concomitant]
  3. ALUMINUM HYDROXIDE TAB [Concomitant]
  4. CALCIUM CARBONATE (CALCIUM CARBONATE) [Concomitant]
  5. MAGNESIUM TRISILICATE (MAGNESIUM TRISILICATE) [Concomitant]
  6. SODIUM BICARBONATE IN PLASTIC CONTAINER [Concomitant]
  7. LAMOTRIGINE [Concomitant]
  8. MELATONIN (MELATONIN) [Concomitant]
  9. MIDAZOLAM HCL [Concomitant]
  10. ZONISAMIDE [Concomitant]

REACTIONS (4)
  - DROOLING [None]
  - THIRST [None]
  - TREMOR [None]
  - VOMITING [None]
